FAERS Safety Report 5507476-7 (Version None)
Quarter: 2007Q4

REPORT INFORMATION
  Report Type: 
  Country: None (occurrence: None)
  Receive Date: 20071106
  Receipt Date: 20071029
  Transmission Date: 20080405
  Serious: Yes (Other)
  Sender: FDA-Public Use
  Company Number: US-JNJFOC-20071007943

PATIENT
  Sex: Male
  Weight: 83.5 kg

DRUGS (17)
  1. DOXIL [Suspect]
     Indication: MULTIPLE MYELOMA
     Dosage: 30MG/M2
     Route: 042
  2. PROCRIT [Concomitant]
     Route: 065
  3. PROCRIT [Concomitant]
     Route: 065
  4. PROCRIT [Concomitant]
     Indication: DRUG USE FOR UNKNOWN INDICATION
     Route: 065
  5. VELCADE [Concomitant]
     Dosage: ADMINISTERED ON DAYS 1, 4, 8 AND 11
     Route: 042
  6. ZOFRAN [Concomitant]
     Indication: PREMEDICATION
     Route: 042
  7. DEXAMETHASONE [Concomitant]
     Indication: PREMEDICATION
     Route: 042
  8. COMPAZINE [Concomitant]
     Indication: NAUSEA
     Dosage: AS REQUIRED
     Route: 048
  9. FLOMAX [Concomitant]
     Route: 065
  10. ATENOLOL [Concomitant]
     Route: 065
  11. LISINOPRIL [Concomitant]
     Route: 065
  12. ZOCOR [Concomitant]
     Route: 065
  13. PANTOPRAZOLE SODIUM [Concomitant]
     Route: 065
  14. MULTI-VITAMIN [Concomitant]
     Route: 065
  15. TYLENOL (CAPLET) [Concomitant]
     Indication: PREMEDICATION
     Route: 048
  16. BENADRYL [Concomitant]
     Indication: PREMEDICATION
     Route: 042
  17. DEXAMETHASONE [Concomitant]
     Route: 048

REACTIONS (4)
  - BACK PAIN [None]
  - BLOOD PRESSURE INCREASED [None]
  - HOT FLUSH [None]
  - INFUSION RELATED REACTION [None]
